FAERS Safety Report 12573158 (Version 2)
Quarter: 2016Q3

REPORT INFORMATION
  Report Type: Spontaneous
  Country: PT (occurrence: PT)
  Receive Date: 20160720
  Receipt Date: 20160810
  Transmission Date: 20161109
  Serious: Yes (Hospitalization)
  Sender: FDA-Public Use
  Company Number: PT-AUROBINDO-AUR-APL-2016-09083

PATIENT

DRUGS (12)
  1. BUPROPION. [Interacting]
     Active Substance: BUPROPION
     Indication: DEPRESSION
     Dosage: 300 MG, DAILY
     Route: 065
  2. THIOPENTAL [Concomitant]
     Active Substance: THIOPENTAL
  3. SERTRALINE [Interacting]
     Active Substance: SERTRALINE HYDROCHLORIDE
     Indication: DEPRESSION
     Dosage: 200 MG, UNK
     Route: 065
  4. ATROPINE. [Concomitant]
     Active Substance: ATROPINE
  5. SERTRALINE [Suspect]
     Active Substance: SERTRALINE HYDROCHLORIDE
     Indication: MAJOR DEPRESSION
     Dosage: 200 MG, DAILY
     Route: 065
  6. RISPERIDONE 4MG [Suspect]
     Active Substance: RISPERIDONE
     Dosage: 4 MG, DAILY
     Route: 065
  7. SUCCINYLCHOLINE [Concomitant]
     Active Substance: SUCCINYLCHOLINE
  8. RISPERIDONE 4MG [Suspect]
     Active Substance: RISPERIDONE
     Indication: DEPRESSION
     Dosage: 2 MG, DAILY
     Route: 065
  9. BUPROPION. [Interacting]
     Active Substance: BUPROPION
     Indication: MAJOR DEPRESSION
     Dosage: TITRATED AT 300 MG/DAY,
  10. SUCCINYLCHOLINE [Concomitant]
     Active Substance: SUCCINYLCHOLINE
     Indication: PRODUCT USED FOR UNKNOWN INDICATION
     Dosage: 55 MG, UNK
     Route: 065
  11. ATROPINE. [Concomitant]
     Active Substance: ATROPINE
     Indication: PRODUCT USED FOR UNKNOWN INDICATION
     Dosage: 0.5 MG, UNK
  12. THIOPENTAL [Concomitant]
     Active Substance: THIOPENTAL
     Indication: PRODUCT USED FOR UNKNOWN INDICATION
     Dosage: 275 MG, UNK
     Route: 065

REACTIONS (2)
  - Drug interaction [Recovered/Resolved]
  - Generalised tonic-clonic seizure [Recovered/Resolved]
